FAERS Safety Report 8506086-7 (Version None)
Quarter: 2012Q3

REPORT INFORMATION
  Report Type: 
  Country: None (occurrence: None)
  Receive Date: 20120706
  Receipt Date: 20120706
  Transmission Date: 20120928
  Serious: Yes (Hospitalization)
  Sender: FDA-Public Use
  Company Number: None

PATIENT
  Age: 61 Year
  Sex: Male
  Weight: 82 kg

DRUGS (1)
  1. AMOXICILLIN AND CLAVULANATE POTASSIUM [Suspect]
     Indication: SURGERY
     Dosage: MG PO
     Route: 048
     Dates: start: 20120507, end: 20120516

REACTIONS (10)
  - SWELLING FACE [None]
  - THROAT TIGHTNESS [None]
  - CHEST PAIN [None]
  - CHEST DISCOMFORT [None]
  - PRURITUS [None]
  - FLUSHING [None]
  - DYSPNOEA [None]
  - PARAESTHESIA [None]
  - RASH ERYTHEMATOUS [None]
  - EYE SWELLING [None]
